FAERS Safety Report 14808650 (Version 1)
Quarter: 2018Q2

REPORT INFORMATION
  Report Type: Report from Study
  Country: US (occurrence: US)
  Receive Date: 20180425
  Receipt Date: 20180425
  Transmission Date: 20180711
  Serious: No
  Sender: FDA-Public Use
  Company Number: US-AMGEN-USASL2018018447

PATIENT
  Age: 65 Year
  Sex: Male

DRUGS (2)
  1. REPATHA [Suspect]
     Active Substance: EVOLOCUMAB
     Indication: HYPERLIPIDAEMIA
  2. REPATHA [Suspect]
     Active Substance: EVOLOCUMAB
     Indication: ARTERIOSCLEROSIS CORONARY ARTERY
     Dosage: 140 MG, Q2WK
     Route: 065
     Dates: start: 20180201

REACTIONS (7)
  - Hot flush [Unknown]
  - Feeling abnormal [Unknown]
  - Injection site bruising [Unknown]
  - Pancreatic disorder [Unknown]
  - Pain [Unknown]
  - Influenza like illness [Unknown]
  - Myalgia [Unknown]

NARRATIVE: CASE EVENT DATE: 201802
